FAERS Safety Report 10202436 (Version 5)
Quarter: 2014Q4

REPORT INFORMATION
  Report Type: Report from Study
  Country: US (occurrence: US)
  Receive Date: 20140528
  Receipt Date: 20141107
  Transmission Date: 20150528
  Serious: Yes (Hospitalization, Other)
  Sender: FDA-Public Use
  Company Number: US-SA-2014SA018535

PATIENT
  Age: 54 Year
  Sex: Male

DRUGS (1)
  1. AUBAGIO [Suspect]
     Active Substance: TERIFLUNOMIDE
     Indication: MULTIPLE SCLEROSIS
     Route: 048
     Dates: start: 20140202

REACTIONS (6)
  - Tremor [Unknown]
  - Hypoaesthesia [Unknown]
  - Spinal cord oedema [Recovered/Resolved]
  - Spinal operation [Unknown]
  - Fatigue [Unknown]
  - Seizure [Not Recovered/Not Resolved]
